FAERS Safety Report 24325163 (Version 1)
Quarter: 2024Q3

REPORT INFORMATION
  Report Type: Report from Study
  Country: US (occurrence: US)
  Receive Date: 20240916
  Receipt Date: 20240916
  Transmission Date: 20241017
  Serious: Yes (Other)
  Sender: AMGEN
  Company Number: US-AMGEN-USASL2024179719

PATIENT
  Age: 80 Year
  Sex: Female

DRUGS (2)
  1. ARANESP [Suspect]
     Active Substance: DARBEPOETIN ALFA
     Indication: Small cell lung cancer extensive stage
     Dosage: UNK
     Route: 065
     Dates: start: 20240724
  2. IMDELLTRA [Suspect]
     Active Substance: TARLATAMAB-DLLE
     Indication: Product used for unknown indication
     Dosage: UNK
     Route: 065

REACTIONS (5)
  - Immune effector cell-associated neurotoxicity syndrome [Unknown]
  - Cytokine release syndrome [Unknown]
  - Breast cancer metastatic [Unknown]
  - Central nervous system lesion [Unknown]
  - Off label use [Unknown]

NARRATIVE: CASE EVENT DATE: 20240724
